FAERS Safety Report 9350615 (Version 1)
Quarter: 2013Q2

REPORT INFORMATION
  Report Type: Spontaneous
  Country: GB (occurrence: GB)
  Receive Date: 20130617
  Receipt Date: 20130617
  Transmission Date: 20140414
  Serious: Yes (Other)
  Sender: FDA-Public Use
  Company Number: GB-JNJFOC-20130608443

PATIENT
  Sex: 0

DRUGS (1)
  1. PALEXIA SR [Suspect]
     Indication: PRODUCT USED FOR UNKNOWN INDICATION
     Route: 048

REACTIONS (3)
  - Overdose [Unknown]
  - Inappropriate schedule of drug administration [Unknown]
  - Insomnia [Unknown]
